FAERS Safety Report 7694399-0 (Version None)
Quarter: 2011Q3

REPORT INFORMATION
  Report Type: 
  Country: None (occurrence: None)
  Receive Date: 20110816
  Receipt Date: 20110803
  Transmission Date: 20111222
  Serious: Yes (Death, Hospitalization)
  Sender: FDA-Public Use
  Company Number: 2009-00930

PATIENT
  Age: 64 Year
  Sex: Male

DRUGS (14)
  1. METOPROLOL TARTRATE [Concomitant]
  2. BUPRENORPHINE [Concomitant]
  3. OXYGEN (OXYGEN) [Concomitant]
  4. PERINDOPRIL ERBUMINE [Concomitant]
  5. ALLOPURINOL [Concomitant]
  6. PREDNISOLONE [Concomitant]
  7. ACETAMINOPHEN [Concomitant]
  8. TRAMADOL HCL [Concomitant]
  9. THEOPHYLLAMIN (THEOPHYLLINE, ETHYLENEDIAMINE) [Concomitant]
  10. OMEPRAZOLE [Concomitant]
  11. VELCADE [Suspect]
     Indication: MULTIPLE MYELOMA
     Dosage: 2.2 MG, INTRAVENOUS
     Route: 042
     Dates: start: 20090217, end: 20090227
  12. AMOXICILLIN W/CLAVULANATE POTASSIUM (AMOXICILLIN, CLAVULANATE POTASSIU [Concomitant]
  13. TIOTROPIUM (TIOTROPIUM) [Concomitant]
  14. PAMIDRONATE DISODIUM [Concomitant]

REACTIONS (7)
  - PULMONARY OEDEMA [None]
  - DYSPNOEA [None]
  - DILATATION VENTRICULAR [None]
  - PULMONARY HYPERTENSION [None]
  - RESPIRATORY DISTRESS [None]
  - TACHYCARDIA [None]
  - HYPOXIA [None]
